FAERS Safety Report 8548409 (Version 6)
Quarter: 2013Q3

REPORT INFORMATION
  Report Type: Report from Study
  Country: JP (occurrence: JP)
  Receive Date: 20120507
  Receipt Date: 20130920
  Transmission Date: 20140515
  Serious: Yes (Other)
  Sender: FDA-Public Use
  Company Number: JP-VERTEX PHARMACEUTICALS INC.-AE-2012-006311

PATIENT
  Age: 55 Year
  Sex: Male

DRUGS (24)
  1. VX-950 (TELAPREVIR) [Suspect]
     Indication: CHRONIC HEPATITIS C
     Dosage: 2250 MG, QD
     Route: 048
     Dates: start: 20120309, end: 20120601
  2. VX-950 (TELAPREVIR) [Suspect]
     Dosage: UNK
  3. REBETOL [Suspect]
     Indication: CHRONIC HEPATITIS C
     Dosage: 800 MG, UNK
     Route: 048
     Dates: start: 20120309, end: 20120405
  4. REBETOL [Suspect]
     Dosage: 600 MG, UNK
     Route: 048
     Dates: start: 20120406, end: 20120419
  5. REBETOL [Suspect]
     Dosage: 400 MG, UNK
     Route: 048
     Dates: start: 20120420, end: 20120628
  6. REBETOL [Suspect]
     Dosage: 600 MG, UNK
     Route: 048
     Dates: start: 20120629, end: 20130215
  7. PEGINTRON [Suspect]
     Indication: CHRONIC HEPATITIS C
     Dosage: 1.5 ?G/KG, QW
     Route: 058
     Dates: start: 20120309, end: 20120329
  8. PEGINTRON [Suspect]
     Dosage: 0.75 ?G/KG, QW
     Route: 058
     Dates: start: 20120330, end: 20120405
  9. PEGINTRON [Suspect]
     Dosage: 1.0 ?G/KG, QW
     Route: 058
     Dates: start: 20120406, end: 20120420
  10. PEGINTRON [Suspect]
     Dosage: 0.5 ?G, QW
     Route: 058
     Dates: start: 20120427, end: 20120705
  11. PEGINTRON [Suspect]
     Dosage: 1.0 ?G/KG, QW
     Route: 058
     Dates: start: 20120706, end: 20130208
  12. PEGINTRON [Suspect]
     Dosage: UNK
  13. PREDONINE [Suspect]
     Indication: ADVERSE EVENT
     Dosage: 30 MG, QD
     Route: 048
     Dates: start: 20120313, end: 20120315
  14. XYZAL [Suspect]
     Indication: ADVERSE EVENT
     Dosage: 5 MG, QD
     Route: 048
     Dates: start: 20120323, end: 20120419
  15. ALLELOCK [Suspect]
     Indication: ADVERSE EVENT
     Dosage: 5 MG, QD
     Route: 048
     Dates: start: 20120323, end: 20120810
  16. METHADERM [Concomitant]
     Dosage: UNK UNK, PRN
     Route: 061
     Dates: start: 20120406
  17. HIRUDOID [Concomitant]
     Dosage: UNK UNK, PRN
     Route: 061
     Dates: start: 20120622
  18. TALION [Concomitant]
     Dosage: 20 MG, QD
     Route: 048
     Dates: start: 20120413
  19. AMOBAN [Concomitant]
     Dosage: 7.5 MG, QD
     Route: 048
  20. LOXONIN [Concomitant]
     Dosage: 60 MG, QD/PRN
     Route: 048
  21. PRIMPERAN [Concomitant]
     Dosage: 5 MG, QD
     Route: 048
  22. HIRUDOID [Concomitant]
     Dosage: UNK, PRN
     Route: 051
  23. METHADERM [Concomitant]
     Dosage: UNK, PRN
     Route: 061
     Dates: start: 20120622
  24. CRAVIT [Concomitant]
     Dosage: UNK, PRN
     Route: 047
     Dates: start: 20120409, end: 20120622

REACTIONS (1)
  - Delirium [Recovered/Resolved]
